FAERS Safety Report 15641262 (Version 1)
Quarter: 2018Q4

REPORT INFORMATION
  Report Type: Spontaneous
  Country: GB (occurrence: GB)
  Receive Date: 20181120
  Receipt Date: 20181120
  Transmission Date: 20190205
  Serious: No
  Sender: FDA-Public Use
  Company Number: GB-MARKSANS PHARMA LIMITED-2059120

PATIENT
  Sex: Female

DRUGS (1)
  1. FLUOXETINE MOLECULE FROM UK MARKET [Suspect]
     Active Substance: FLUOXETINE HYDROCHLORIDE
     Route: 048

REACTIONS (3)
  - Malaise [None]
  - Hyperhidrosis [None]
  - Nausea [None]
